FAERS Safety Report 7758879-1 (Version None)
Quarter: 2011Q3

REPORT INFORMATION
  Report Type: 
  Country: None (occurrence: None)
  Receive Date: 20110919
  Receipt Date: 20110908
  Transmission Date: 20111222
  Serious: Yes (Death, Life-Threatening, Other)
  Sender: FDA-Public Use
  Company Number: JP-CELGENEUS-087-50794-11072864

PATIENT
  Age: 70 Year
  Sex: Male

DRUGS (35)
  1. PURSENNID [Concomitant]
     Route: 065
     Dates: start: 20110719, end: 20110721
  2. KENKETSU GLOVENIN-I-NICHIYAKU [Concomitant]
     Route: 065
     Dates: start: 20110722, end: 20110724
  3. MEROPENEM [Concomitant]
     Route: 065
     Dates: start: 20110720, end: 20110802
  4. VIDAZA [Suspect]
     Indication: MYELODYSPLASTIC SYNDROME
     Dosage: 75 MILLIGRAM/SQ. METER
     Route: 058
     Dates: start: 20110707, end: 20110713
  5. METHYCOBAL [Concomitant]
     Route: 065
     Dates: end: 20110721
  6. FAMOTIDINE [Concomitant]
     Route: 065
     Dates: end: 20110721
  7. ZOFRAN [Concomitant]
     Route: 065
     Dates: start: 20110707, end: 20110721
  8. PRECEDEX [Concomitant]
     Route: 065
     Dates: start: 20110722, end: 20110815
  9. MORPHINE HCL ELIXIR [Concomitant]
     Route: 065
     Dates: start: 20110815, end: 20110817
  10. HUMULIN R [Concomitant]
     Route: 065
     Dates: start: 20110722, end: 20110816
  11. FIRSTCIN [Concomitant]
     Route: 065
     Dates: start: 20110718, end: 20110720
  12. NEUART [Concomitant]
     Route: 065
     Dates: start: 20110725, end: 20110802
  13. OMEPRAZOLE [Concomitant]
     Route: 065
     Dates: start: 20110722, end: 20110808
  14. FUTHAN [Concomitant]
     Route: 065
     Dates: start: 20110722, end: 20110817
  15. NATEGLINIDE [Concomitant]
     Route: 065
     Dates: end: 20110721
  16. RINDERON-VG [Concomitant]
     Route: 065
     Dates: start: 20110713
  17. NOREPINEPHRINE BITARTRATE [Concomitant]
     Route: 065
     Dates: start: 20110722, end: 20110812
  18. ACETAMINOPHEN [Concomitant]
     Route: 065
     Dates: start: 20110719, end: 20110721
  19. ADONA [Concomitant]
     Route: 065
     Dates: start: 20110727, end: 20110816
  20. MAGMITT [Concomitant]
     Route: 065
     Dates: start: 20110720, end: 20110721
  21. ITRACONAZOLE [Concomitant]
     Route: 065
     Dates: end: 20110721
  22. TIENAM [Concomitant]
     Route: 065
     Dates: start: 20110803, end: 20110806
  23. SOLU-CORTEF [Concomitant]
     Route: 065
     Dates: start: 20110719, end: 20110814
  24. FENTANYL [Concomitant]
     Route: 065
     Dates: start: 20110722, end: 20110815
  25. NEUTROGIN [Concomitant]
     Route: 065
     Dates: start: 20110725, end: 20110816
  26. ZOSYN [Concomitant]
     Route: 065
     Dates: start: 20110812, end: 20110816
  27. DIPRIVAN [Concomitant]
     Route: 065
     Dates: start: 20110722, end: 20110815
  28. PITRESSIN [Concomitant]
     Route: 065
     Dates: start: 20110722, end: 20110725
  29. PAZUCROSS [Concomitant]
     Route: 065
     Dates: start: 20110722, end: 20110809
  30. ADALAT [Concomitant]
     Route: 065
     Dates: end: 20110721
  31. ALBUMIN (HUMAN) [Concomitant]
     Route: 065
     Dates: start: 20110725, end: 20110725
  32. BISOLVON [Concomitant]
     Route: 065
     Dates: start: 20110727, end: 20110816
  33. LANSOPRAZOLE [Concomitant]
     Route: 065
     Dates: start: 20110808, end: 20110816
  34. VANCOMYCIN HYCHLORIDE [Concomitant]
     Route: 065
     Dates: start: 20110720, end: 20110814
  35. FUNGUARD [Concomitant]
     Route: 065
     Dates: start: 20110722, end: 20110812

REACTIONS (11)
  - PNEUMONIA [None]
  - NEUTROPHIL COUNT DECREASED [None]
  - SEPTIC SHOCK [None]
  - ACUTE RESPIRATORY FAILURE [None]
  - CARDIAC FAILURE ACUTE [None]
  - COAGULOPATHY [None]
  - SEPSIS [None]
  - RENAL FAILURE [None]
  - HEPATIC FAILURE [None]
  - PYREXIA [None]
  - GASTROINTESTINAL HAEMORRHAGE [None]
